FAERS Safety Report 23925536 (Version 1)
Quarter: 2024Q2

REPORT INFORMATION
  Report Type: Spontaneous
  Country: US (occurrence: None)
  Receive Date: 20240530
  Receipt Date: 20240530
  Transmission Date: 20240716
  Serious: Yes (Life-Threatening, Hospitalization)
  Sender: FDA-Public Use
  Company Number: None

PATIENT
  Age: 75 Year
  Sex: Male

DRUGS (1)
  1. REPATHA [Suspect]
     Active Substance: EVOLOCUMAB

REACTIONS (5)
  - Myocardial infarction [None]
  - Cerebrovascular accident [None]
  - Fall [None]
  - Joint injury [None]
  - Haemorrhage [None]

NARRATIVE: CASE EVENT DATE: 20240528
